FAERS Safety Report 9123520 (Version 2)
Quarter: 2013Q1

REPORT INFORMATION
  Report Type: Spontaneous
  Country: DE (occurrence: None)
  Receive Date: 20130129
  Receipt Date: 20130211
  Transmission Date: 20140127
  Serious: Yes (Other)
  Sender: FDA-Public Use
  Company Number: DE-1196240

PATIENT
  Age: 78 Year
  Sex: Female

DRUGS (4)
  1. AZOPT 1 % OPHTHALMIC  SUSPENSION (AZOPT 1%) [Suspect]
     Indication: GLAUCOMA
     Route: 047
     Dates: start: 20130104, end: 20130117
  2. TRAVATAN 0.004 % OPHTHALMIC SOLUTION (TRAVATAN POLYQUAD 0.004%) [Suspect]
     Indication: GLAUCOMA
     Dosage: 0.004 % QD OPHTHALMIC
     Route: 047
  3. TIMOMANN EYE DROPS (TIMOMANN EYE DROPS) (MANN) [Suspect]
     Indication: GLAUCOMA
     Dosage: 1 DF BID OPHTHALMIC
     Route: 047
  4. METFORMIN [Concomitant]

REACTIONS (6)
  - Cardiovascular disorder [None]
  - Palpitations [None]
  - Heart rate irregular [None]
  - Heart rate increased [None]
  - Dyspnoea [None]
  - Tinnitus [None]
